FAERS Safety Report 9141104 (Version 2)
Quarter: 2014Q2

REPORT INFORMATION
  Report Type: Spontaneous
  Country: None (occurrence: US)
  Receive Date: 20130305
  Receipt Date: 20140203
  Transmission Date: 20141212
  Serious: Yes (Other)
  Sender: FDA-Public Use
  Company Number: US-ALLERGAN-1302879US

PATIENT
  Age: 52 Year
  Sex: Female

DRUGS (5)
  1. BOTOX [Suspect]
     Indication: TORTICOLLIS
     Dosage: 100 UNITS, SINGLE
     Route: 030
     Dates: start: 20130220, end: 20130220
  2. BOTOX [Suspect]
     Dosage: 350 UNITS, SINGLE
  3. THYROID MEDICATION (NOS) [Concomitant]
     Indication: HYPOTHYROIDISM
     Dosage: UNK
     Route: 048
  4. POTASSIUM [Concomitant]
     Indication: SUPPLEMENTATION THERAPY
     Dosage: UNK
     Route: 048
  5. SEIZURE MEDICATION (NOS) [Concomitant]
     Indication: PRODUCT USED FOR UNKNOWN INDICATION
     Dosage: UNK
     Route: 048

REACTIONS (9)
  - Oxygen saturation decreased [Unknown]
  - Depression [Unknown]
  - Feeling abnormal [Unknown]
  - Road traffic accident [Unknown]
  - Dyspnoea [Unknown]
  - Dyspnoea [Unknown]
  - Influenza like illness [Unknown]
  - Muscular weakness [Unknown]
  - Headache [Unknown]
